FAERS Safety Report 9527162 (Version 2)
Quarter: 2013Q3

REPORT INFORMATION
  Report Type: Report from Study
  Country: CA (occurrence: CA)
  Receive Date: 20130916
  Receipt Date: 20130916
  Transmission Date: 20140515
  Serious: Yes (Death, Hospitalization)
  Sender: FDA-Public Use
  Company Number: CA-ROCHE-1253447

PATIENT
  Age: 43 Year
  Sex: Male
  Weight: 70.3 kg

DRUGS (8)
  1. AVASTIN [Suspect]
     Indication: PANCREATIC CARCINOMA
     Route: 042
     Dates: start: 20130301, end: 20130528
  2. OXAZEPAM [Concomitant]
  3. LORAZEPAM [Concomitant]
  4. ONDANSETRON [Concomitant]
  5. METFORMIN [Concomitant]
  6. FRAGMIN [Concomitant]
  7. GEMCITABINE [Concomitant]
     Indication: CHEMOTHERAPY
  8. ABRAXANE [Concomitant]
     Indication: CHEMOTHERAPY

REACTIONS (3)
  - Death [Fatal]
  - Drug ineffective [Fatal]
  - Enteritis infectious [Unknown]
